FAERS Safety Report 14564138 (Version 3)
Quarter: 2018Q2

REPORT INFORMATION
  Report Type: Spontaneous
  Country: AT (occurrence: AT)
  Receive Date: 20180222
  Receipt Date: 20180402
  Transmission Date: 20180711
  Serious: Yes (Other)
  Sender: FDA-Public Use
  Company Number: AT-B.I. PHARMACEUTICALS,INC./RIDGEFIELD-2018-BI-008618

PATIENT
  Age: 77 Year
  Sex: Male

DRUGS (6)
  1. GILOTRIF [Suspect]
     Active Substance: AFATINIB
     Indication: LUNG ADENOCARCINOMA
     Route: 065
     Dates: start: 20161001
  2. GILOTRIF [Suspect]
     Active Substance: AFATINIB
     Route: 065
     Dates: start: 201701
  3. DENOSUMAB [Concomitant]
     Active Substance: DENOSUMAB
     Indication: METASTASES TO BONE
     Route: 058
  4. GILOTRIF [Suspect]
     Active Substance: AFATINIB
     Indication: EGFR GENE MUTATION
     Route: 065
     Dates: start: 201610, end: 201612
  5. GILOTRIF [Suspect]
     Active Substance: AFATINIB
     Route: 065
     Dates: start: 201611
  6. GILOTRIF [Suspect]
     Active Substance: AFATINIB
     Route: 065
     Dates: start: 201612

REACTIONS (9)
  - Liver function test increased [Unknown]
  - Anosmia [Unknown]
  - Metastases to central nervous system [Unknown]
  - Memory impairment [Unknown]
  - Ageusia [Unknown]
  - Off label use [Unknown]
  - Spinal pain [Unknown]
  - Gastrointestinal disorder [Recovered/Resolved]
  - Neutropenia [Unknown]

NARRATIVE: CASE EVENT DATE: 20161101
